FAERS Safety Report 11214940 (Version 1)
Quarter: 2015Q2

REPORT INFORMATION
  Report Type: Spontaneous
  Country: GB (occurrence: GB)
  Receive Date: 20150624
  Receipt Date: 20150624
  Transmission Date: 20150821
  Serious: Yes (Hospitalization, Disabling)
  Sender: FDA-Public Use
  Company Number: GB-009507513-1506GBR009459

PATIENT
  Age: 85 Year
  Sex: Female

DRUGS (9)
  1. ALBUTEROL. [Concomitant]
     Active Substance: ALBUTEROL
     Dosage: UNK
  2. CODEINE PHOSPHATE [Concomitant]
     Active Substance: CODEINE PHOSPHATE
     Dosage: 30 MG AS NEEDED; 1-2 FOUR TIMES A DAY AS NEEDED
  3. MEMANTINE HYDROCHLORIDE [Concomitant]
     Active Substance: MEMANTINE HYDROCHLORIDE
     Dosage: 15 MG QD
  4. LOSORTAN POTASSIUM [Concomitant]
     Active Substance: LOSARTAN POTASSIUM
     Dosage: 50 MG QD, AT NIGHT
     Route: 048
  5. OMEPRAZOLE. [Concomitant]
     Active Substance: OMEPRAZOLE
     Dosage: 40 MG QD, IN MORNING
  6. SIMVASTATIN. [Suspect]
     Active Substance: SIMVASTATIN
     Indication: BLOOD CHOLESTEROL ABNORMAL
     Dosage: 40 MG QD, AT NIGHT
     Route: 048
     Dates: end: 20150404
  7. ACETAMINOPHEN. [Concomitant]
     Active Substance: ACETAMINOPHEN
     Dosage: 1 G, QID
  8. SERETIDE [Concomitant]
     Active Substance: FLUTICASONE FUROATE\SALMETEROL XINAFOATE
     Dosage: 1 DF, BID
     Route: 055
  9. ASPIRIN. [Concomitant]
     Active Substance: ASPIRIN
     Dosage: 75 MG QD, IN MORNING

REACTIONS (7)
  - Rhabdomyolysis [Recovering/Resolving]
  - Arthralgia [Unknown]
  - Blood creatine phosphokinase increased [Recovered/Resolved]
  - Pain in extremity [Unknown]
  - Liver function test abnormal [Unknown]
  - Mobility decreased [Unknown]
  - Muscle contracture [Unknown]

NARRATIVE: CASE EVENT DATE: 20150403
